FAERS Safety Report 22085064 (Version 2)
Quarter: 2023Q2

REPORT INFORMATION
  Report Type: Report from Study
  Country: FR (occurrence: FR)
  Receive Date: 20230310
  Receipt Date: 20230529
  Transmission Date: 20230722
  Serious: Yes (Other)
  Sender: FDA-Public Use
  Company Number: FR-AstraZeneca-2023A025117

PATIENT
  Age: 78 Year
  Sex: Female
  Weight: 76 kg

DRUGS (4)
  1. GEMCITABINE HYDROCHLORIDE [Suspect]
     Active Substance: GEMCITABINE HYDROCHLORIDE
     Indication: Cholangiocarcinoma
     Dosage: UNK UNK, EVERY 3 WEEKS
     Dates: start: 20230105
  2. CISPLATIN [Suspect]
     Active Substance: CISPLATIN
     Indication: Cholangiocarcinoma
     Dosage: UNK, EVERY 3 WEEKS
     Dates: start: 20230105
  3. IMFINZI [Suspect]
     Active Substance: DURVALUMAB
     Indication: Bile duct cancer
     Dosage: 1500 MG, EVERY 3 WEEKS
     Route: 042
     Dates: start: 20230105
  4. IMFINZI [Suspect]
     Active Substance: DURVALUMAB
     Dosage: 1500 MG, EVERY 3 WEEKS
     Route: 042
     Dates: start: 20230126

REACTIONS (2)
  - Vascular purpura [Recovered/Resolved]
  - Asthenia [Unknown]

NARRATIVE: CASE EVENT DATE: 20230114
